FAERS Safety Report 7699475-4 (Version None)
Quarter: 2011Q3

REPORT INFORMATION
  Report Type: 
  Country: None (occurrence: None)
  Receive Date: 20110820
  Receipt Date: 20101215
  Transmission Date: 20111222
  Serious: No
  Sender: FDA-Public Use
  Company Number: US-ALLERGAN-1016371US

PATIENT
  Age: 71 Year
  Sex: Female

DRUGS (5)
  1. ALLEGRA [Concomitant]
  2. ASPIRIN [Concomitant]
  3. SANCTURA XR [Suspect]
     Indication: HYPERTONIC BLADDER
     Dosage: 60 MG, QD
     Route: 048
     Dates: start: 20101101
  4. METFORMIN HYDROCHLORIDE [Concomitant]
  5. MULTI-VITAMINS [Concomitant]

REACTIONS (2)
  - CONSTIPATION [None]
  - DRY MOUTH [None]
